FAERS Safety Report 5958512-5 (Version None)
Quarter: 2008Q4

REPORT INFORMATION
  Report Type: 
  Country: None (occurrence: None)
  Receive Date: 20081119
  Receipt Date: 20081110
  Transmission Date: 20090506
  Serious: Yes (Other)
  Sender: FDA-Public Use
  Company Number: PHHY2008GB26865

PATIENT
  Sex: Female

DRUGS (7)
  1. SANDOSTATIN [Suspect]
     Dosage: 300 MG, UNK
     Route: 058
     Dates: end: 20081027
  2. OXYCODONE HCL [Concomitant]
     Indication: PAIN
     Route: 058
  3. HYOSCINE HBR HYT [Concomitant]
     Indication: MUSCLE SPASMS
     Route: 058
  4. PANTOPRAZOLE SODIUM [Concomitant]
     Indication: ANTACID THERAPY
     Dosage: 40 MG, UNK
     Route: 042
  5. DEXAMETHASONE 0.5MG TAB [Concomitant]
     Dosage: 6 MG DAILY
     Route: 048
  6. AUGMENTIN '125' [Concomitant]
     Indication: URINARY TRACT INFECTION
     Dosage: UNK
     Route: 042
     Dates: start: 20081012, end: 20081024
  7. CHEMOTHERAPEUTICS NOS [Concomitant]
     Route: 065

REACTIONS (3)
  - ALANINE AMINOTRANSFERASE INCREASED [None]
  - BLOOD ALKALINE PHOSPHATASE INCREASED [None]
  - HYPERBILIRUBINAEMIA [None]
